FAERS Safety Report 9535488 (Version 5)
Quarter: 2013Q4

REPORT INFORMATION
  Report Type: Report from Study
  Country: US (occurrence: US)
  Receive Date: 20130918
  Receipt Date: 20131127
  Transmission Date: 20140711
  Serious: Yes (Hospitalization, Other)
  Sender: FDA-Public Use
  Company Number: US-GILEAD-2013-0073785

PATIENT
  Age: 24 Year
  Sex: Female
  Weight: 74 kg

DRUGS (14)
  1. EMTRICITABINE/RILPIVIRINE/TENOFOVIR DF [Suspect]
     Indication: HIV INFECTION
     Dosage: 1 DF, QD
     Route: 048
     Dates: start: 20130411
  2. EMTRICITABINE/RILPIVIRINE/TENOFOVIR DF [Suspect]
     Indication: PROPHYLAXIS AGAINST HIV INFECTION
  3. DARUNAVIR [Suspect]
     Indication: HIV INFECTION
     Dosage: UNK
     Route: 048
  4. DARUNAVIR [Suspect]
     Indication: HIV INFECTION
  5. RETROVIR [Concomitant]
     Indication: PRODUCT USED FOR UNKNOWN INDICATION
     Dosage: 300 MG, BID
     Route: 048
  6. PHENERGAN                          /00033001/ [Concomitant]
     Indication: PRODUCT USED FOR UNKNOWN INDICATION
     Dosage: 25 MG, QD
     Route: 048
  7. MULTIVITAMINS [Concomitant]
     Indication: PRODUCT USED FOR UNKNOWN INDICATION
     Dosage: 1 DF, QD
     Route: 048
  8. BACTRIM [Concomitant]
     Indication: PRODUCT USED FOR UNKNOWN INDICATION
     Dosage: 1 UNK, UNK
     Route: 048
  9. METROGEL [Concomitant]
     Indication: PRODUCT USED FOR UNKNOWN INDICATION
     Dosage: 1 DF, QD
     Route: 067
  10. DIFLUCAN [Concomitant]
     Indication: PRODUCT USED FOR UNKNOWN INDICATION
     Dosage: 150 MG, QOD
     Route: 048
  11. FERROUS SULFATE [Concomitant]
     Indication: PRODUCT USED FOR UNKNOWN INDICATION
     Dosage: UNK
  12. MISOPROSTOL [Concomitant]
     Indication: LABOUR INDUCTION
  13. PITOCIN                            /00071301/ [Concomitant]
     Indication: PRODUCT USED FOR UNKNOWN INDICATION
  14. METHERGINE [Concomitant]
     Indication: UTERINE ATONY

REACTIONS (2)
  - Amniotic cavity infection [Recovered/Resolved]
  - Pregnancy [Recovered/Resolved]
